FAERS Safety Report 21125892 (Version 1)
Quarter: 2022Q3

REPORT INFORMATION
  Report Type: Spontaneous
  Country: US (occurrence: US)
  Receive Date: 20220725
  Receipt Date: 20220725
  Transmission Date: 20221026
  Serious: Yes (Other)
  Sender: FDA-Public Use
  Company Number: US-ABBVIE-22K-163-4362569-00

PATIENT
  Age: 26 Year
  Sex: Female
  Weight: 52.210 kg

DRUGS (2)
  1. ORILISSA [Suspect]
     Active Substance: ELAGOLIX SODIUM
     Indication: Endometriosis
     Dosage: UNKNOWN
     Route: 048
     Dates: start: 202104, end: 202105
  2. ORILISSA [Suspect]
     Active Substance: ELAGOLIX SODIUM
     Dosage: UNKNOWN
     Route: 048
     Dates: start: 202105, end: 202110

REACTIONS (7)
  - Suicidal ideation [Not Recovered/Not Resolved]
  - Adverse drug reaction [Unknown]
  - Disturbance in attention [Not Recovered/Not Resolved]
  - Depression [Not Recovered/Not Resolved]
  - Bone loss [Unknown]
  - Mood swings [Unknown]
  - Apathy [Not Recovered/Not Resolved]

NARRATIVE: CASE EVENT DATE: 20210501
